FAERS Safety Report 9256985 (Version 3)
Quarter: 2014Q2

REPORT INFORMATION
  Report Type: Spontaneous
  Country: AU (occurrence: None)
  Receive Date: 20130424
  Receipt Date: 20140508
  Transmission Date: 20141212
  Serious: Yes (Hospitalization)
  Sender: FDA-Public Use
  Company Number: VAL_02298_2013

PATIENT
  Age: 99 Year
  Sex: Female
  Weight: 40 kg

DRUGS (8)
  1. TEMAZEPAM [Suspect]
     Indication: PRODUCT USED FOR UNKNOWN INDICATION
     Route: 048
     Dates: start: 20120416, end: 20130418
  2. CLOPIDOGREL [Suspect]
     Indication: PRODUCT USED FOR UNKNOWN INDICATION
     Route: 048
  3. METOPROLOL (METOPROLOL-METOPROLOL TARTRATE) [Suspect]
     Indication: PRODUCT USED FOR UNKNOWN INDICATION
     Dosage: DF
     Route: 048
  4. ALENDRONATE (UNKNOWN) [Concomitant]
  5. CALCIUM (UNKNOWN) [Concomitant]
  6. FRUSEIDE /00032601/ (UNKNOWN) [Concomitant]
  7. RANITIDINE (UNKNOWN) [Concomitant]
  8. SPIRONOLACTONE (UNKNOWN) [Concomitant]

REACTIONS (4)
  - Fall [None]
  - Femoral neck fracture [None]
  - Laceration [None]
  - Contusion [None]
